FAERS Safety Report 24269353 (Version 1)
Quarter: 2024Q3

REPORT INFORMATION
  Report Type: Spontaneous
  Country: US (occurrence: None)
  Receive Date: 20240830
  Receipt Date: 20240830
  Transmission Date: 20241017
  Serious: Yes (Hospitalization)
  Sender: Public
  Company Number: None

PATIENT
  Sex: Female

DRUGS (2)
  1. HUMIRA [Suspect]
     Active Substance: ADALIMUMAB
     Indication: Hidradenitis
     Dosage: 80MG EVERY 7 DAYS UNDER THE SKIN?
     Route: 042
     Dates: start: 202108
  2. WEGOVY [Suspect]
     Active Substance: SEMAGLUTIDE

REACTIONS (4)
  - Crohn^s disease [None]
  - Impaired gastric emptying [None]
  - Product dose omission in error [None]
  - Therapy cessation [None]
